FAERS Safety Report 20515190 (Version 2)
Quarter: 2023Q4

REPORT INFORMATION
  Report Type: Spontaneous
  Country: US (occurrence: US)
  Receive Date: 20220224
  Receipt Date: 20231013
  Transmission Date: 20240110
  Serious: Yes (Other)
  Sender: FDA-Public Use
  Company Number: US-COOPERSURGICAL, INC.-US-2022CPS000432

PATIENT
  Age: 33 Year
  Sex: Female
  Weight: 55.782 kg

DRUGS (2)
  1. PARAGARD T 380A [Suspect]
     Active Substance: COPPER
     Indication: Contraception
     Dosage: UNK
     Route: 015
     Dates: start: 20141110, end: 20191115
  2. ORTHO MICRONOR [Concomitant]
     Active Substance: NORETHINDRONE
     Indication: Contraception
     Dosage: 0.35 MG, QD
     Route: 048
     Dates: start: 20140729

REACTIONS (15)
  - Deformity [Unknown]
  - Congenital uterine anomaly [Unknown]
  - Device breakage [Recovered/Resolved]
  - Complication of device removal [Recovered/Resolved]
  - Foreign body in reproductive tract [Recovered/Resolved]
  - Embedded device [Recovered/Resolved]
  - Pain [Unknown]
  - Emotional distress [Unknown]
  - Depression [Unknown]
  - Reproductive complication associated with device [Unknown]
  - Anxiety [Unknown]
  - Economic problem [Unknown]
  - Pelvic pain [Recovered/Resolved]
  - Device expulsion [Unknown]
  - Heavy menstrual bleeding [Unknown]

NARRATIVE: CASE EVENT DATE: 20141130
